FAERS Safety Report 7596100-8 (Version None)
Quarter: 2011Q3

REPORT INFORMATION
  Report Type: 
  Country: None (occurrence: None)
  Receive Date: 20110707
  Receipt Date: 20110622
  Transmission Date: 20111222
  Serious: Yes (Other)
  Sender: FDA-Public Use
  Company Number: CA-JUTA GMBH-2011-09156

PATIENT

DRUGS (1)
  1. ALENDRONIC ACID [Suspect]
     Indication: PRODUCT USED FOR UNKNOWN INDICATION
     Dosage: 70 MG, 1/WEEK
     Route: 048
     Dates: end: 20110605

REACTIONS (4)
  - SYNCOPE [None]
  - LACERATION [None]
  - LIGAMENT SPRAIN [None]
  - NAUSEA [None]
